FAERS Safety Report 5410662-8 (Version None)
Quarter: 2007Q3

REPORT INFORMATION
  Report Type: 
  Country: None (occurrence: None)
  Receive Date: 20070810
  Receipt Date: 20070516
  Transmission Date: 20080115
  Serious: Yes (Other)
  Sender: FDA-Public Use
  Company Number: A0651607A

PATIENT
  Age: 53 Year
  Sex: Female

DRUGS (2)
  1. PAXIL [Suspect]
     Indication: DEPRESSION
     Dosage: 5MG PER DAY
     Route: 048
     Dates: start: 20060101
  2. ADDERALL 10 [Concomitant]

REACTIONS (2)
  - MYALGIA [None]
  - ULCER HAEMORRHAGE [None]
